FAERS Safety Report 23313177 (Version 1)
Quarter: 2023Q4

REPORT INFORMATION
  Report Type: Spontaneous
  Country: FR (occurrence: FR)
  Receive Date: 20231219
  Receipt Date: 20231219
  Transmission Date: 20240110
  Serious: Yes (Other)
  Sender: FDA-Public Use
  Company Number: FR-ELI_LILLY_AND_COMPANY-FR202311011509

PATIENT
  Sex: Female

DRUGS (3)
  1. OLANZAPINE [Suspect]
     Active Substance: OLANZAPINE
     Indication: Psychotic disorder
     Dosage: 10 MG OD?DAILY DOSE: 10 MILLIGRAM
  2. OLANZAPINE [Suspect]
     Active Substance: OLANZAPINE
     Indication: Niemann-Pick disease
     Dosage: 10 MG OD?DAILY DOSE: 10 MILLIGRAM
  3. OLANZAPINE [Suspect]
     Active Substance: OLANZAPINE
     Indication: Schizoaffective disorder
     Dosage: 10 MG OD?DAILY DOSE: 10 MILLIGRAM

REACTIONS (2)
  - Delirium [Unknown]
  - Somnolence [Unknown]
